FAERS Safety Report 5243891-7 (Version None)
Quarter: 2007Q1

REPORT INFORMATION
  Report Type: 
  Country: None (occurrence: None)
  Receive Date: 20070222
  Receipt Date: 20070212
  Transmission Date: 20070707
  Serious: Yes (Hospitalization)
  Sender: FDA-Public Use
  Company Number: US-NOVOPROD-260783

PATIENT
  Age: 60 Year
  Sex: Female
  Weight: 54.422 kg

DRUGS (4)
  1. NOVOLOG [Suspect]
     Indication: INSULIN-REQUIRING TYPE II DIABETES MELLITUS
     Dosage: 15 IU, QD DURING DAYTIME
     Route: 058
     Dates: start: 20040101, end: 20050101
  2. LANTUS [Suspect]
     Indication: INSULIN-REQUIRING TYPE II DIABETES MELLITUS
     Dosage: 22 IU, QD
     Route: 058
     Dates: start: 20040101
  3. ATENOLOL [Concomitant]
     Indication: HYPERTENSION
     Dosage: 1 TAB, BID OR TID
     Route: 048
  4. ISOSORBIDE [Concomitant]
     Indication: ARTERIOSPASM CORONARY
     Dosage: 1 TAB, QD
     Route: 048

REACTIONS (3)
  - ASTHENIA [None]
  - BLOOD GLUCOSE INCREASED [None]
  - DRUG DISPENSING ERROR [None]
